FAERS Safety Report 4301387-0 (Version None)
Quarter: 2004Q1

REPORT INFORMATION
  Report Type: 
  Country: None (occurrence: None)
  Receive Date: 20040223
  Receipt Date: 20031001
  Transmission Date: 20041129
  Serious: Yes (Other)
  Sender: FDA-Public Use
  Company Number: US-GLAXOSMITHKLINE-A0428260A

PATIENT
  Age: 60 Year
  Sex: Male

DRUGS (1)
  1. NAVELBINE [Suspect]
     Indication: NON-SMALL CELL LUNG CANCER

REACTIONS (2)
  - NEUTROPENIA [None]
  - PNEUMONIA [None]
